FAERS Safety Report 12624816 (Version 1)
Quarter: 2016Q3

REPORT INFORMATION
  Report Type: Spontaneous
  Country: US (occurrence: None)
  Receive Date: 20160804
  Receipt Date: 20160804
  Transmission Date: 20161109
  Serious: Yes (Other)
  Sender: FDA-Public Use
  Company Number: None

PATIENT
  Age: 58 Year
  Sex: Male
  Weight: 72.58 kg

DRUGS (10)
  1. ATORVASTATIN [Concomitant]
     Active Substance: ATORVASTATIN
  2. MULTIVITAMINS [Concomitant]
     Active Substance: VITAMINS
  3. ROGAINE SPRAY [Concomitant]
  4. BABY ASPIRIN [Concomitant]
     Active Substance: ASPIRIN
  5. FINASTERIDE. [Concomitant]
     Active Substance: FINASTERIDE
  6. AMLODIPINE [Suspect]
     Active Substance: AMLODIPINE BESYLATE
     Indication: HYPERTENSION
     Route: 048
     Dates: start: 20160627, end: 20160803
  7. FLUTICASONE PROPIONATE. [Concomitant]
     Active Substance: FLUTICASONE PROPIONATE
  8. MAGNESIUM [Concomitant]
     Active Substance: MAGNESIUM
  9. POTASSIUM [Concomitant]
     Active Substance: POTASSIUM
  10. VITAMIN D3 [Concomitant]
     Active Substance: CHOLECALCIFEROL

REACTIONS (8)
  - Peripheral swelling [None]
  - Lacrimation increased [None]
  - Stomatitis [None]
  - Dermatitis [None]
  - Dysgeusia [None]
  - Thyroid disorder [None]
  - Pruritus [None]
  - Muscle fatigue [None]

NARRATIVE: CASE EVENT DATE: 20160802
